FAERS Safety Report 23223032 (Version 8)
Quarter: 2024Q4

REPORT INFORMATION
  Report Type: Spontaneous
  Country: JP (occurrence: JP)
  Receive Date: 20231123
  Receipt Date: 20241105
  Transmission Date: 20250115
  Serious: Yes (Death, Life-Threatening, Other)
  Sender: ALEXION PHARMACEUTICALS
  Company Number: 2023A262046

PATIENT
  Age: 80 Year
  Weight: 54 kg

DRUGS (15)
  1. ANDEXXA [Suspect]
     Active Substance: ANDEXANET ALFA
     Indication: Cerebral haemorrhage
     Dosage: 880MG; 400 MG WAS INTRAVENOUSLY GIVEN AT 30 MG/MIN FOLLOWED BY 480 MG AT 4 MG IN 2 HOURS
  2. XARELTO [Concomitant]
     Active Substance: RIVAROXABAN
     Indication: Atrial fibrillation
     Dosage: DOSE UNKNOWN
  3. XARELTO [Concomitant]
     Active Substance: RIVAROXABAN
     Indication: Atrial fibrillation
     Dosage: DOSE UNKNOWN
  4. XARELTO [Concomitant]
     Active Substance: RIVAROXABAN
     Dosage: DOSE UNKNOWN
  5. OMEPRAZOLE [Concomitant]
     Active Substance: OMEPRAZOLE
     Dosage: 20 MILLIGRAM, UNK, FREQUENCY: UNK
  6. ATROPINE [Concomitant]
     Active Substance: ATROPINE
     Dosage: 1 IU
  7. FENTANYL [Concomitant]
     Active Substance: FENTANYL
     Dosage: UNK
  8. FENTANYL [Concomitant]
     Active Substance: FENTANYL
  9. MILLISROL [Concomitant]
     Dosage: 25 MILLIGRAM, UNK, FREQUENCY: UNK
  10. DORMICUM [Concomitant]
     Dosage: 10 MILLIGRAM, UNK, FREQUENCY: UNK
  11. ALPROSTADIL ALFADEX [Concomitant]
     Active Substance: ALPROSTADIL ALFADEX
     Dosage: 20 MICROGRAM, UNK, FREQUENCY: UNK
  12. NEUART [Concomitant]
     Active Substance: ANTITHROMBIN III HUMAN
     Dosage: 1500 IU, FREQUENCY: UNK
  13. DOPAMINE [Concomitant]
     Active Substance: DOPAMINE HYDROCHLORIDE
     Dosage: 600 MILLIGRAM, UNK, FREQUENCY: UNK
  14. DOPAMINE [Concomitant]
     Active Substance: DOPAMINE HYDROCHLORIDE
     Dosage: 600 MILLIGRAM
  15. Omepral injection 20 [Concomitant]

REACTIONS (4)
  - Cardiac failure congestive [Fatal]
  - Acute myocardial infarction [Fatal]
  - Ventricular fibrillation [Recovered/Resolved]
  - Seizure [Recovering/Resolving]
